FAERS Safety Report 16260546 (Version 1)
Quarter: 2019Q2

REPORT INFORMATION
  Report Type: Spontaneous
  Country: US (occurrence: US)
  Receive Date: 20190501
  Receipt Date: 20190501
  Transmission Date: 20190711
  Serious: Yes (Hospitalization, Other)
  Sender: FDA-Public Use
  Company Number: US-IPSEN BIOPHARMACEUTICALS, INC.-2019-06979

PATIENT
  Sex: Male

DRUGS (1)
  1. SOMATULINE SR [Suspect]
     Active Substance: LANREOTIDE ACETATE
     Indication: NEUROENDOCRINE TUMOUR
     Dosage: DOSE NOT REPORTED
     Route: 065
     Dates: start: 20190222, end: 2019

REACTIONS (2)
  - Pancreatitis [Unknown]
  - Disease progression [Unknown]

NARRATIVE: CASE EVENT DATE: 2019
